FAERS Safety Report 4959593-8 (Version None)
Quarter: 2006Q1

REPORT INFORMATION
  Report Type: 
  Country: None (occurrence: None)
  Receive Date: 20060331
  Receipt Date: 20060322
  Transmission Date: 20060701
  Serious: Yes (Hospitalization)
  Sender: FDA-Public Use
  Company Number: GB-BRISTOL-MYERS SQUIBB COMPANY-13322847

PATIENT
  Age: 83 Year
  Sex: Female

DRUGS (4)
  1. FOSINOPRIL SODIUM [Suspect]
     Indication: HYPERTENSION
     Route: 048
     Dates: end: 20060306
  2. CO-TENIDONE [Suspect]
     Indication: HYPERTENSION
     Route: 048
     Dates: end: 20060306
  3. ASPIRIN [Concomitant]
     Route: 048
  4. ATORVASTATIN CALCIUM [Concomitant]
     Route: 048

REACTIONS (5)
  - ASTHENIA [None]
  - HYPOKALAEMIA [None]
  - HYPONATRAEMIA [None]
  - HYPOREFLEXIA [None]
  - LOSS OF CONSCIOUSNESS [None]
